FAERS Safety Report 9024299 (Version 2)
Quarter: 2013Q1

REPORT INFORMATION
  Report Type: Spontaneous
  Country: US (occurrence: US)
  Receive Date: 20130121
  Receipt Date: 20130201
  Transmission Date: 20140127
  Serious: Yes (Other)
  Sender: FDA-Public Use
  Company Number: PHEH2012US003697

PATIENT
  Sex: Female

DRUGS (8)
  1. GLEEVEC [Suspect]
     Indication: SOFT TISSUE CANCER
     Dosage: 400 MG, QD
     Route: 048
     Dates: start: 201107
  2. GLEEVEC [Suspect]
     Indication: GASTROINTESTINAL STROMAL TUMOUR
  3. SIMVASTATIN [Concomitant]
  4. LEVOTHROID [Concomitant]
  5. LISINOPRIL [Concomitant]
  6. ANTIHYPERTENSIVE DRUGS [Concomitant]
  7. LEVOTHYROXIN [Concomitant]
  8. CALTRATE [Concomitant]
     Dosage: UNK

REACTIONS (15)
  - Pulmonary mass [Unknown]
  - Thyroid cancer [Unknown]
  - Second primary malignancy [Unknown]
  - Aortic calcification [Unknown]
  - Thyroid function test abnormal [Unknown]
  - Thyroid mass [Unknown]
  - Gastrointestinal disorder [Unknown]
  - Hypoaesthesia [Unknown]
  - Diarrhoea [Unknown]
  - Eye irritation [Unknown]
  - Eye swelling [Unknown]
  - Arthritis [Unknown]
  - Muscle spasms [Unknown]
  - Cough [Unknown]
  - Vomiting [Unknown]
